FAERS Safety Report 8777676 (Version 1)
Quarter: 2012Q4

REPORT INFORMATION
  Report Type: 
  Country: JP (occurrence: JP)
  Receive Date: 20120907
  Receipt Date: 20120907
  Transmission Date: 20130627
  Serious: Yes (Other)
  Sender: FDA-Public Use
  Company Number: JP-ELI_LILLY_AND_COMPANY-JP201007001435

PATIENT
  Age: 29 Year
  Sex: Male

DRUGS (1)
  1. ZYPREXA [Suspect]
     Indication: INTERMITTENT EXPLOSIVE DISORDER
     Dosage: 5 mg, daily (1/D)
     Route: 048

REACTIONS (1)
  - Somnolence [Unknown]
